FAERS Safety Report 21944912 (Version 1)
Quarter: 2023Q1

REPORT INFORMATION
  Report Type: Spontaneous
  Country: US (occurrence: None)
  Receive Date: 20230201
  Receipt Date: 20230201
  Transmission Date: 20230418
  Serious: Yes (Other)
  Sender: FDA-Public Use
  Company Number: None

PATIENT
  Age: 70 Year
  Sex: Female
  Weight: 99.45 kg

DRUGS (16)
  1. FLUTICASONE PROPIONATE [Suspect]
     Active Substance: FLUTICASONE PROPIONATE
     Indication: Ill-defined disorder
     Dosage: OTHER QUANTITY : 2 SPRAY(S);?
     Route: 055
  2. AZELASTINE [Concomitant]
     Active Substance: AZELASTINE
  3. TRELEGY ELLIPTA [Concomitant]
     Active Substance: FLUTICASONE FUROATE\UMECLIDINIUM BROMIDE\VILANTEROL TRIFENATATE
  4. ALBUTEROL [Concomitant]
     Active Substance: ALBUTEROL
  5. MIDODRINE [Concomitant]
     Active Substance: MIDODRINE
  6. fludtocortosone [Concomitant]
  7. METAXALONE [Concomitant]
     Active Substance: METAXALONE
  8. TYLENOL [Concomitant]
     Active Substance: ACETAMINOPHEN
  9. TRAZODONE [Concomitant]
     Active Substance: TRAZODONE HYDROCHLORIDE
  10. LAMICTAL [Concomitant]
     Active Substance: LAMOTRIGINE
  11. ESCITALOPRAM [Concomitant]
     Active Substance: ESCITALOPRAM OXALATE
  12. XARELTO [Concomitant]
     Active Substance: RIVAROXABAN
  13. Senior vitamin [Concomitant]
  14. CALCIUM\VITAMIN D [Concomitant]
     Active Substance: CALCIUM\VITAMIN D
  15. HERBALS\WITHANIA SOMNIFERA ROOT [Concomitant]
     Active Substance: HERBALS\WITHANIA SOMNIFERA ROOT
  16. PROBIOTICS NOS [Concomitant]
     Active Substance: PROBIOTICS NOS

REACTIONS (1)
  - Dyspnoea [None]

NARRATIVE: CASE EVENT DATE: 20230201
